FAERS Safety Report 19024528 (Version 3)
Quarter: 2021Q2

REPORT INFORMATION
  Report Type: Report from Study
  Country: US (occurrence: US)
  Receive Date: 20210318
  Receipt Date: 20210505
  Transmission Date: 20210717
  Serious: Yes (Hospitalization)
  Sender: FDA-Public Use
  Company Number: US-ROCHE-2786369

PATIENT
  Age: 80 Year
  Sex: Female
  Weight: 92.6 kg

DRUGS (18)
  1. PREDNISONE. [Suspect]
     Active Substance: PREDNISONE
     Indication: MANTLE CELL LYMPHOMA
     Dosage: ON DAYS 1?7 Q3W?THE LAST DOSE OF PREDNISONE WAS ADMINISTERED ON 04/MAR/2021
     Route: 048
     Dates: start: 20210111
  2. LENALIDOMIDE [Suspect]
     Active Substance: LENALIDOMIDE
     Indication: MANTLE CELL LYMPHOMA
     Dosage: ON DAYS 1?14?THE LAST DOSE OF LENALIDOMIDE PRIOR TO THE SAE WAS ADMINISTERED ON 05/MAR/2021.
     Route: 048
     Dates: start: 20210111
  3. CLONIDINE. [Concomitant]
     Active Substance: CLONIDINE
  4. ASPIRIN. [Concomitant]
     Active Substance: ASPIRIN
  5. VENTOLIN HFA [Concomitant]
     Active Substance: ALBUTEROL SULFATE
  6. IBRUTINIB [Suspect]
     Active Substance: IBRUTINIB
     Indication: MANTLE CELL LYMPHOMA
     Dosage: CYCLE 1, DAY 1, ON DAYS 1?14?THE LAST DOSE OF IBRUTINIB PRIOR TO THE SAE WAS ADMINISTERED ON 05/MAR/
     Route: 048
     Dates: start: 20210111
  7. ATORVASTATIN [Concomitant]
     Active Substance: ATORVASTATIN
  8. FOLIC ACID. [Concomitant]
     Active Substance: FOLIC ACID
  9. BACTRIM DS [Concomitant]
     Active Substance: SULFAMETHOXAZOLE\TRIMETHOPRIM
     Dosage: 800MG/160MG MWF
  10. LEVETIRACETAM. [Concomitant]
     Active Substance: LEVETIRACETAM
  11. ALLOPURINOL. [Concomitant]
     Active Substance: ALLOPURINOL
  12. ALVESCO [Concomitant]
     Active Substance: CICLESONIDE
  13. OBINUTUZUMAB. [Suspect]
     Active Substance: OBINUTUZUMAB
     Indication: MANTLE CELL LYMPHOMA
     Dosage: ON DAYS 1 AND 2, ?THE LAST DOSE OF OBINUTUZUMAB PRIOR TO THE SAE WAS ADMINISTERED ON 27/FEB/2021
     Route: 042
     Dates: start: 20210111
  14. HYDROCHLOROTHIAZIDE. [Concomitant]
     Active Substance: HYDROCHLOROTHIAZIDE
  15. PANTOPRAZOLE [Concomitant]
     Active Substance: PANTOPRAZOLE
  16. NIFEDIPINE. [Concomitant]
     Active Substance: NIFEDIPINE
  17. VENETOCLAX. [Suspect]
     Active Substance: VENETOCLAX
     Indication: MANTLE CELL LYMPHOMA
     Dosage: ON DAYS 2?14?THE LAST DOSE OF VENETOCLAX, PRIOR TO THE SAE WAS ADMINISTERED ON 05/MAR/2021.
     Route: 048
     Dates: start: 20210202
  18. LOPERAMIDE [Concomitant]
     Active Substance: LOPERAMIDE

REACTIONS (1)
  - Syncope [Recovered/Resolved]

NARRATIVE: CASE EVENT DATE: 20210305
